FAERS Safety Report 4525285-2 (Version None)
Quarter: 2004Q4

REPORT INFORMATION
  Report Type: 
  Country: None (occurrence: None)
  Receive Date: 20041213
  Receipt Date: 20041027
  Transmission Date: 20050328
  Serious: Yes (Hospitalization)
  Sender: FDA-Public Use
  Company Number: US-ROCHE-384701

PATIENT
  Sex: Female

DRUGS (1)
  1. XENICAL [Suspect]
     Indication: BLOOD CHOLESTEROL INCREASED
     Route: 048
     Dates: end: 20040615

REACTIONS (3)
  - EMBOLISM [None]
  - FREQUENT BOWEL MOVEMENTS [None]
  - WEIGHT LOSS POOR [None]
